FAERS Safety Report 4295089-7 (Version None)
Quarter: 2004Q1

REPORT INFORMATION
  Report Type: 
  Country: None (occurrence: None)
  Receive Date: 20040212
  Receipt Date: 20040129
  Transmission Date: 20041129
  Serious: Yes (Hospitalization)
  Sender: FDA-Public Use
  Company Number: S04-USA-00336-01

PATIENT

DRUGS (10)
  1. LEXAPRO [Suspect]
     Dates: start: 20031009
  2. WELLBUTRIN [Suspect]
  3. LIPITOR [Concomitant]
  4. AVAPRO [Concomitant]
  5. TRICOR [Concomitant]
  6. AMIODARONE [Concomitant]
  7. ANDRODERM [Concomitant]
  8. VIAGRA [Concomitant]
  9. MULTI-VITAMIN [Concomitant]
  10. SAW PALLMETTO [Concomitant]

REACTIONS (1)
  - RENAL FAILURE ACUTE [None]
